FAERS Safety Report 10977808 (Version 2)
Quarter: 2015Q2

REPORT INFORMATION
  Report Type: Report from Study
  Country: GB (occurrence: GB)
  Receive Date: 20150402
  Receipt Date: 20150408
  Transmission Date: 20150821
  Serious: Yes (Hospitalization)
  Sender: FDA-Public Use
  Company Number: GB-JNJFOC-20150314206

PATIENT
  Age: 56 Year
  Sex: Female
  Weight: 74 kg

DRUGS (2)
  1. STELARA [Suspect]
     Active Substance: USTEKINUMAB
     Indication: PSORIASIS
     Dosage: GIVEN AT WEEK 0, 4 AND THEN EVERY 12 WEEKS; LAST DOSE GIVEN APPROXIMATELY 07-DEC-2014
     Route: 058
     Dates: start: 20140306
  2. STELARA [Suspect]
     Active Substance: USTEKINUMAB
     Indication: PSORIASIS
     Route: 058
     Dates: start: 20141207

REACTIONS (1)
  - Colonic abscess [Recovered/Resolved]

NARRATIVE: CASE EVENT DATE: 20150224
